FAERS Safety Report 8844617 (Version 1)
Quarter: 2012Q4

REPORT INFORMATION
  Report Type: Spontaneous
  Country: US (occurrence: None)
  Receive Date: 20121012
  Receipt Date: 20121012
  Transmission Date: 20130627
  Serious: Yes (Hospitalization)
  Sender: FDA-Public Use
  Company Number: 2012P1060382

PATIENT
  Sex: Male

DRUGS (2)
  1. DEXTROAMPHETAMINE SACCHARATE, AMPHETAMINE ASPARTATE MONOHYDRATE, DEXTROAMPHETAMINE SULFATE AND AMPHE [Suspect]
  2. UNSPECIFIED INGREDIENT [Suspect]

REACTIONS (4)
  - Drug administration error [None]
  - Drug ineffective [None]
  - Fatigue [None]
  - Incorrect dose administered [None]
